FAERS Safety Report 18097630 (Version 1)
Quarter: 2020Q3

REPORT INFORMATION
  Report Type: Spontaneous
  Country: US (occurrence: US)
  Receive Date: 20200730
  Receipt Date: 20200730
  Transmission Date: 20201103
  Serious: No
  Sender: FDA-Public Use
  Company Number: US-AMAG PHARMACEUTICALS, INC.-AMAG202002312

PATIENT
  Age: 64 Year
  Sex: Female
  Weight: 54.48 kg

DRUGS (1)
  1. INTRAROSA [Suspect]
     Active Substance: PRASTERONE
     Indication: PELVIC DISCOMFORT
     Route: 067
     Dates: start: 202002

REACTIONS (4)
  - Hormone level abnormal [Not Recovered/Not Resolved]
  - Hot flush [Not Recovered/Not Resolved]
  - Off label use [Unknown]
  - Product administration error [Unknown]

NARRATIVE: CASE EVENT DATE: 202002
